FAERS Safety Report 15782638 (Version 2)
Quarter: 2019Q1

REPORT INFORMATION
  Report Type: Spontaneous
  Country: US (occurrence: US)
  Receive Date: 20190102
  Receipt Date: 20190307
  Transmission Date: 20190417
  Serious: No
  Sender: FDA-Public Use
  Company Number: US-ASTRAZENECA-2018SF62414

PATIENT
  Age: 108 Day
  Sex: Female
  Weight: 65.8 kg

DRUGS (4)
  1. CRESTOR [Suspect]
     Active Substance: ROSUVASTATIN CALCIUM
     Indication: BLOOD CHOLESTEROL ABNORMAL
     Dosage: EVERY DAY
     Route: 048
  2. FASENRA [Suspect]
     Active Substance: BENRALIZUMAB
     Dosage: EVERY 8 WEEKS THEREAFTER
     Route: 058
     Dates: start: 20181101
  3. SYMBICORT [Suspect]
     Active Substance: BUDESONIDE\FORMOTEROL FUMARATE DIHYDRATE
     Indication: ASTHMA
     Dosage: 160/4.5 2 PUFF, TWICE A DAY
     Route: 055
     Dates: start: 20181214
  4. FASENRA [Suspect]
     Active Substance: BENRALIZUMAB
     Dosage: MONTHLY FOR 3 MONTHS
     Route: 058

REACTIONS (4)
  - Dyspnoea [Unknown]
  - Parosmia [Not Recovered/Not Resolved]
  - Bronchitis [Unknown]
  - Urticaria [Unknown]

NARRATIVE: CASE EVENT DATE: 20181201
